FAERS Safety Report 5723810-7 (Version None)
Quarter: 2008Q2

REPORT INFORMATION
  Report Type: 
  Country: None (occurrence: None)
  Receive Date: 20080430
  Receipt Date: 20080419
  Transmission Date: 20081010
  Serious: Yes (Life-Threatening, Disabling)
  Sender: FDA-Public Use
  Company Number: NO-JNJFOC-20080405533

PATIENT
  Sex: Male
  Weight: 38.5 kg

DRUGS (2)
  1. TOPIMAX [Suspect]
     Indication: EPILEPSY
     Dosage: 75 MG + 100 MG
  2. NITRAZEPAM [Concomitant]

REACTIONS (1)
  - RENAL FAILURE ACUTE [None]
